FAERS Safety Report 16885992 (Version 1)
Quarter: 2019Q4

REPORT INFORMATION
  Report Type: Spontaneous
  Country: US (occurrence: US)
  Receive Date: 20191004
  Receipt Date: 20191004
  Transmission Date: 20200122
  Serious: Yes (Other)
  Sender: FDA-Public Use
  Company Number: US-ASTRAZENECA-2019SF40201

PATIENT
  Sex: Male

DRUGS (3)
  1. LOPRESSOR [Suspect]
     Active Substance: METOPROLOL TARTRATE
     Route: 065
  2. PREDNISONE. [Concomitant]
     Active Substance: PREDNISONE
  3. IMFINZI [Suspect]
     Active Substance: DURVALUMAB
     Route: 042
     Dates: start: 2019

REACTIONS (6)
  - Anxiety [Unknown]
  - Fatigue [Unknown]
  - Self esteem decreased [Unknown]
  - Mental disorder [Unknown]
  - Suicidal ideation [Unknown]
  - Rash [Unknown]
